FAERS Safety Report 8617047 (Version 3)
Quarter: 2014Q1

REPORT INFORMATION
  Report Type: Spontaneous
  Country: US (occurrence: US)
  Receive Date: 20120615
  Receipt Date: 20140110
  Transmission Date: 20141002
  Serious: Yes (Other)
  Sender: FDA-Public Use
  Company Number: US-ASTRAZENECA-2012SE36185

PATIENT
  Age: 19272 Day
  Sex: Female

DRUGS (9)
  1. NEXIUM [Suspect]
     Indication: ABDOMINAL DISCOMFORT
     Route: 048
  2. NEXIUM [Suspect]
     Indication: GASTROOESOPHAGEAL REFLUX DISEASE
     Route: 048
  3. NEXIUM [Suspect]
     Indication: ABDOMINAL DISCOMFORT
     Route: 048
     Dates: start: 20060916
  4. NEXIUM [Suspect]
     Indication: GASTROOESOPHAGEAL REFLUX DISEASE
     Route: 048
     Dates: start: 20060916
  5. PRILOSEC [Suspect]
     Route: 048
  6. CARBAMAZEPINE [Concomitant]
  7. PHENYTOIN [Concomitant]
  8. DIPHENOXYLATE/ATROPINE [Concomitant]
     Dosage: TK 2 TS PO AFTER EACH LOOSE STOOL NO MORE THAN 8 IN 24 HOURS
     Route: 048
     Dates: start: 20060916
  9. CEPHALEXIN [Concomitant]
     Route: 048
     Dates: start: 20070829

REACTIONS (6)
  - Cerebrovascular accident [Unknown]
  - Osteoporosis [Unknown]
  - Multiple fractures [Unknown]
  - Arthritis [Unknown]
  - Osteopenia [Unknown]
  - Rheumatoid arthritis [Unknown]
